FAERS Safety Report 19032072 (Version 2)
Quarter: 2021Q2

REPORT INFORMATION
  Report Type: Spontaneous
  Country: CN (occurrence: CN)
  Receive Date: 20210319
  Receipt Date: 20210430
  Transmission Date: 20210717
  Serious: No
  Sender: FDA-Public Use
  Company Number: CN-ASTRAZENECA-2021A163603

PATIENT
  Age: 100 Year
  Sex: Male

DRUGS (1)
  1. SODIUM ZIRCONIUM CYCLOSILICATE. [Suspect]
     Active Substance: SODIUM ZIRCONIUM CYCLOSILICATE
     Indication: BLOOD POTASSIUM INCREASED
     Dosage: 10 GRAMS AT NOON AND NIGHT RESPECTIVELY THE NEXT DAY.
     Route: 048

REACTIONS (2)
  - Scrotal oedema [Recovering/Resolving]
  - Scrotal pain [Recovering/Resolving]
